FAERS Safety Report 7935174-9 (Version None)
Quarter: 2011Q4

REPORT INFORMATION
  Report Type: 
  Country: None (occurrence: None)
  Receive Date: 20111122
  Receipt Date: 20111109
  Transmission Date: 20120403
  Serious: No
  Sender: FDA-Public Use
  Company Number: US-B.I. PHARMACEUTICALS,INC./RIDGEFIELD-2011-BP-23806BP

PATIENT
  Sex: Female

DRUGS (7)
  1. LOVENOX [Concomitant]
  2. FAMCICLOVIR [Concomitant]
  3. HYDROCHLOROTHIAZIDE [Concomitant]
     Dates: start: 20110501
  4. ZYRTEC [Concomitant]
  5. PRADAXA [Suspect]
     Indication: DEEP VEIN THROMBOSIS
     Dosage: 300 MG
     Route: 048
     Dates: start: 20110801, end: 20111006
  6. COENZYME Q10 [Concomitant]
     Dates: start: 20110901
  7. VITAMIN D [Concomitant]
     Dates: start: 20090101

REACTIONS (2)
  - HAEMORRHOIDAL HAEMORRHAGE [None]
  - ALOPECIA [None]
